FAERS Safety Report 5332391-1 (Version None)
Quarter: 2007Q2

REPORT INFORMATION
  Report Type: 
  Country: None (occurrence: None)
  Receive Date: 20070523
  Receipt Date: 20070516
  Transmission Date: 20071010
  Serious: Yes (Hospitalization)
  Sender: FDA-Public Use
  Company Number: D0053324A

PATIENT
  Age: 56 Year
  Sex: Male

DRUGS (2)
  1. ALKERAN [Suspect]
     Indication: SURGERY
     Route: 065
     Dates: start: 20061201, end: 20061201
  2. KEPIVANCE [Suspect]
     Indication: CHEMOTHERAPY
     Route: 042
     Dates: start: 20061209, end: 20061217

REACTIONS (6)
  - DYSGEUSIA [None]
  - GENERALISED ERYTHEMA [None]
  - PRURITUS [None]
  - PYREXIA [None]
  - SKIN DISCOLOURATION [None]
  - TONGUE DISORDER [None]
